FAERS Safety Report 5397256-8 (Version None)
Quarter: 2007Q3

REPORT INFORMATION
  Report Type: 
  Country: None (occurrence: None)
  Receive Date: 20070723
  Receipt Date: 20070713
  Transmission Date: 20080115
  Serious: Yes (Hospitalization)
  Sender: FDA-Public Use
  Company Number: 2007SP007023

PATIENT
  Sex: Male
  Weight: 104 kg

DRUGS (3)
  1. PEGETRON (PEGINTERFERON ALFA-2B W/RIBAVIRIN) (PEGYLATED INTERFERON ALF [Suspect]
     Indication: DRUG USE FOR UNKNOWN INDICATION
     Dosage: 150 MCG; QW, 1200 MG; QD
     Dates: start: 20060830, end: 20070411
  2. PEGETRON (PEGINTERFERON ALFA-2B W/RIBAVIRIN) (PEGYLATED INTERFERON ALF [Suspect]
     Indication: DRUG USE FOR UNKNOWN INDICATION
     Dosage: 150 MCG; QW, 1200 MG; QD
     Dates: start: 20060830, end: 20070411
  3. ZOPICLONE [Concomitant]

REACTIONS (6)
  - COGNITIVE DISORDER [None]
  - CONFUSIONAL STATE [None]
  - DELUSION [None]
  - DEPRESSION [None]
  - HALLUCINATION [None]
  - PARANOIA [None]
